FAERS Safety Report 8368060-3 (Version None)
Quarter: 2012Q2

REPORT INFORMATION
  Report Type: 
  Country: None (occurrence: None)
  Receive Date: 20120517
  Receipt Date: 20120223
  Transmission Date: 20120825
  Serious: Yes (Hospitalization, Other)
  Sender: FDA-Public Use
  Company Number: PHHY2011US31843

PATIENT
  Sex: Male
  Weight: 26.14 kg

DRUGS (4)
  1. POLYMYXIN [Concomitant]
     Dosage: UNK UKN, UNK
     Dates: start: 20100728, end: 20100731
  2. AMOXICILLIN [Concomitant]
     Dosage: 480 MG EVERY 12 H
     Route: 048
     Dates: start: 20100728, end: 20100806
  3. EXJADE [Suspect]
     Dosage: 750 MG DAILY
     Route: 048
     Dates: start: 20100826, end: 20110321
  4. EXJADE [Suspect]
     Dosage: 625 MG DAILY
     Route: 048
     Dates: start: 20091110

REACTIONS (9)
  - ACUTE CHEST SYNDROME [None]
  - PYREXIA [None]
  - LUNG INFILTRATION [None]
  - ASTHMA [None]
  - WHEEZING [None]
  - PNEUMONIA [None]
  - COUGH [None]
  - RESPIRATORY DISORDER [None]
  - OTITIS MEDIA [None]
